FAERS Safety Report 5192349-2 (Version None)
Quarter: 2006Q4

REPORT INFORMATION
  Report Type: 
  Country: None (occurrence: None)
  Receive Date: 20061227
  Receipt Date: 20061114
  Transmission Date: 20070319
  Serious: Yes (Other)
  Sender: FDA-Public Use
  Company Number: US-PFIZER INC-2006141428

PATIENT
  Sex: Female
  Weight: 55.3 kg

DRUGS (9)
  1. XALATAN [Suspect]
     Indication: GLAUCOMA
     Route: 047
  2. XALATAN [Suspect]
     Indication: OCULAR HYPERTENSION
  3. LIBRIUM [Suspect]
     Indication: DETOXIFICATION
     Dosage: TEXT:2 TABLETS-FREQ:EVERY 6 HOURS
     Dates: start: 20061109, end: 20061112
  4. DIOVAN [Concomitant]
  5. NORVASC [Concomitant]
  6. VIOXX [Concomitant]
  7. NAPROXEN [Concomitant]
  8. FLEXERIL [Concomitant]
  9. VITAMIN CAP [Concomitant]

REACTIONS (8)
  - ASPARTATE AMINOTRANSFERASE [None]
  - BLOOD CHOLESTEROL [None]
  - CATARACT NUCLEAR [None]
  - DIPLOPIA [None]
  - FATIGUE [None]
  - GAMMA-GLUTAMYLTRANSFERASE [None]
  - VISION BLURRED [None]
  - VISUAL ACUITY REDUCED [None]
